FAERS Safety Report 21581282 (Version 4)
Quarter: 2024Q4

REPORT INFORMATION
  Report Type: Report from Study
  Country: US (occurrence: US)
  Receive Date: 20221111
  Receipt Date: 20241113
  Transmission Date: 20250115
  Serious: Yes (Hospitalization)
  Sender: ROCHE
  Company Number: US-ROCHE-3047408

PATIENT
  Age: 67 Year
  Sex: Female
  Weight: 62.6 kg

DRUGS (15)
  1. OCREVUS [Suspect]
     Active Substance: OCRELIZUMAB
     Indication: Relapsing-remitting multiple sclerosis
     Dosage: DATE OF TREATMENT 05/APR/2023, 05/OCT/2022,22/MAR/2022, 24/AUG/,2021, 24/FEB/2021, 19/AUG/2020, 19/F
     Route: 065
     Dates: start: 20200219
  2. OCREVUS [Suspect]
     Active Substance: OCRELIZUMAB
     Route: 042
  3. OCREVUS [Suspect]
     Active Substance: OCRELIZUMAB
     Route: 042
  4. COPAXONE [Concomitant]
     Active Substance: GLATIRAMER ACETATE
  5. ELIQUIS [Concomitant]
     Active Substance: APIXABAN
  6. AMBIEN [Concomitant]
     Active Substance: ZOLPIDEM TARTRATE
  7. ATORVASTATIN [Concomitant]
     Active Substance: ATORVASTATIN
  8. CHANTIX [Concomitant]
     Active Substance: VARENICLINE TARTRATE
  9. KLONOPIN [Concomitant]
     Active Substance: CLONAZEPAM
  10. LEXAPRO [Concomitant]
     Active Substance: ESCITALOPRAM OXALATE
  11. GABAPENTIN [Concomitant]
     Active Substance: GABAPENTIN
  12. PROLIA [Concomitant]
     Active Substance: DENOSUMAB
  13. TRAMADOL [Concomitant]
     Active Substance: TRAMADOL
  14. UBRELVY [Concomitant]
     Active Substance: UBROGEPANT
  15. HYDROXYCHLOROQUINE [Concomitant]
     Active Substance: HYDROXYCHLOROQUINE

REACTIONS (30)
  - Vomiting [Recovered/Resolved]
  - Malaise [Unknown]
  - Vitamin D deficiency [Unknown]
  - Hepatic function abnormal [Unknown]
  - Headache [Not Recovered/Not Resolved]
  - Pyrexia [Recovered/Resolved]
  - Stress [Unknown]
  - Abdominal discomfort [Recovered/Resolved]
  - Urinary tract infection [Recovered/Resolved]
  - Urinary retention [Not Recovered/Not Resolved]
  - Thrombosis [Unknown]
  - Dyspnoea [Recovering/Resolving]
  - Barrett^s oesophagus [Not Recovered/Not Resolved]
  - Fatigue [Not Recovered/Not Resolved]
  - Cough [Not Recovered/Not Resolved]
  - Amnesia [Not Recovered/Not Resolved]
  - Dysphemia [Not Recovered/Not Resolved]
  - Pain [Not Recovered/Not Resolved]
  - Nausea [Not Recovered/Not Resolved]
  - Deep vein thrombosis [Unknown]
  - Pulmonary embolism [Unknown]
  - Embolism [Unknown]
  - Discomfort [Unknown]
  - Balance disorder [Unknown]
  - Syncope [Unknown]
  - Monoclonal immunoglobulin present [Unknown]
  - Feeling abnormal [Unknown]
  - Blood immunoglobulin M decreased [Not Recovered/Not Resolved]
  - Thyroid mass [Not Recovered/Not Resolved]
  - Spondylitis [Unknown]

NARRATIVE: CASE EVENT DATE: 20220213
